FAERS Safety Report 8164061-9 (Version None)
Quarter: 2012Q1

REPORT INFORMATION
  Report Type: 
  Country: None (occurrence: None)
  Receive Date: 20120224
  Receipt Date: 20120215
  Transmission Date: 20120608
  Serious: Yes (Other)
  Sender: FDA-Public Use
  Company Number: PHHO2011GR10547

PATIENT
  Sex: Male
  Weight: 66.7 kg

DRUGS (9)
  1. BACTRIM [Concomitant]
  2. ALPHA [Concomitant]
  3. PROGRAF [Suspect]
     Indication: RENAL TRANSPLANT
     Dosage: 1.5 MG
     Route: 048
     Dates: start: 20110204
  4. TROPHICARD [Concomitant]
  5. MYFORTIC [Suspect]
     Dosage: 180 MG
     Route: 048
  6. VALCYTE [Concomitant]
  7. PREDNISOLONE [Suspect]
     Indication: RENAL TRANSPLANT
     Dosage: 5 MG
     Route: 048
     Dates: start: 20110203
  8. MYFORTIC [Suspect]
     Indication: RENAL TRANSPLANT
     Dosage: 360 MG
     Route: 048
     Dates: start: 20110203, end: 20110620
  9. PRILOSEC [Concomitant]

REACTIONS (1)
  - RENAL FAILURE ACUTE [None]
